FAERS Safety Report 10902070 (Version 1)
Quarter: 2015Q1

REPORT INFORMATION
  Report Type: Spontaneous
  Country: FR (occurrence: FR)
  Receive Date: 20150310
  Receipt Date: 20150310
  Transmission Date: 20150721
  Serious: Yes (Other)
  Sender: FDA-Public Use
  Company Number: PHHY2015FR027893

PATIENT
  Age: 79 Year
  Sex: Male

DRUGS (2)
  1. CLARITHROMYCIN. [Suspect]
     Active Substance: CLARITHROMYCIN
     Indication: MYCOBACTERIUM ULCERANS INFECTION
     Dosage: 1 G, QD
     Route: 048
  2. RIFAMPICIN [Suspect]
     Active Substance: RIFAMPIN
     Indication: MYCOBACTERIUM ULCERANS INFECTION
     Dosage: 600 MG, QD
     Route: 048

REACTIONS (4)
  - Paradoxical drug reaction [Recovered/Resolved]
  - Mycobacterium ulcerans infection [Recovered/Resolved]
  - Condition aggravated [Recovered/Resolved]
  - Pain of skin [Recovered/Resolved]
